FAERS Safety Report 5297649-3 (Version None)
Quarter: 2007Q2

REPORT INFORMATION
  Report Type: 
  Country: None (occurrence: None)
  Receive Date: 20070409
  Receipt Date: 20070326
  Transmission Date: 20071010
  Serious: Yes (Other)
  Sender: FDA-Public Use
  Company Number: 15732

PATIENT
  Age: 72 Year
  Sex: Female
  Weight: 68 kg

DRUGS (6)
  1. METHOTREXATE [Suspect]
     Dosage: 10 MG WEEKLY PO
     Route: 048
  2. OMEPRAZOLE [Suspect]
     Dosage: 20 MG PO
     Route: 048
  3. CELECOXIB [Suspect]
     Dosage: 200 MG PO
     Route: 048
  4. FOLIC ACID [Suspect]
     Dosage: 5 MG 2/WK PO
     Route: 048
  5. FOSAMAX [Suspect]
     Dosage: 70 MG WEEKLY PO
     Route: 048
  6. INFLIXIMAB [Suspect]
     Dosage: 200 MG IV
     Route: 042
     Dates: start: 20060420, end: 20060928

REACTIONS (5)
  - CEREBRAL INFARCTION [None]
  - DRUG INTERACTION [None]
  - DRUG TOXICITY [None]
  - LOSS OF CONSCIOUSNESS [None]
  - SYNCOPE [None]
